FAERS Safety Report 7115951-7 (Version None)
Quarter: 2010Q4

REPORT INFORMATION
  Report Type: 
  Country: None (occurrence: None)
  Receive Date: 20101122
  Receipt Date: 20101117
  Transmission Date: 20110411
  Serious: Yes (Hospitalization)
  Sender: FDA-Public Use
  Company Number: US-ALEXION-A201001366

PATIENT

DRUGS (6)
  1. SOLIRIS [Suspect]
     Indication: PAROXYSMAL NOCTURNAL HAEMOGLOBINURIA
     Dosage: 900 MG, Q2W
     Route: 042
  2. NORCO [Concomitant]
     Indication: MIGRAINE
     Dosage: UNK
     Route: 048
  3. IMITREX [Concomitant]
     Indication: MIGRAINE
     Dosage: UNK
     Route: 048
  4. MENINGOCOCCAL VACCINE [Concomitant]
     Indication: IMMUNISATION
     Dosage: UNK
     Dates: start: 20100101, end: 20100101
  5. INFLUENZA VACCINE [Concomitant]
     Indication: IMMUNISATION
     Dosage: UNK
     Dates: start: 20101001, end: 20101001
  6. PNEUMONIA VACCINE [Concomitant]
     Indication: IMMUNISATION
     Dosage: UNK
     Dates: start: 20101001, end: 20101001

REACTIONS (4)
  - ABDOMINAL PAIN [None]
  - ANAEMIA [None]
  - PAROTITIS [None]
  - SIALOADENITIS [None]
